FAERS Safety Report 25044914 (Version 12)
Quarter: 2025Q3

REPORT INFORMATION
  Report Type: Spontaneous
  Country: EU (occurrence: EU)
  Receive Date: 20250306
  Receipt Date: 20250702
  Transmission Date: 20251020
  Serious: Yes (Other)
  Sender: SANDOZ
  Company Number: None

PATIENT
  Age: 26 Year
  Sex: Female
  Weight: 44.5 kg

DRUGS (14)
  1. BUDESONIDE [Suspect]
     Active Substance: BUDESONIDE
     Indication: Cystic fibrosis
     Route: 065
     Dates: start: 20240415
  2. CHOLECALCIFEROL [Suspect]
     Active Substance: CHOLECALCIFEROL
     Indication: Vitamin supplementation
     Dosage: 2 DF, QMONTH
     Route: 065
     Dates: start: 20240415
  3. CHOLECALCIFEROL [Suspect]
     Active Substance: CHOLECALCIFEROL
     Indication: Vitamin supplementation
  4. DESLORATADINE [Suspect]
     Active Substance: DESLORATADINE
     Indication: Product used for unknown indication
     Dosage: 1 DF, QD
     Route: 064
     Dates: start: 20240415
  5. ESOMEPRAZOLE [Suspect]
     Active Substance: ESOMEPRAZOLE
     Indication: Cystic fibrosis
     Dosage: 20 MG, QD (TABLET)
     Route: 065
     Dates: start: 20240415
  6. PANCRELIPASE [Suspect]
     Active Substance: PANCRELIPASE
     Indication: Cystic fibrosis
     Dosage: 12 DOSAGE FORM, QD
     Route: 064
     Dates: start: 20240415, end: 20250109
  7. PANCRELIPASE [Suspect]
     Active Substance: PANCRELIPASE
     Indication: Cystic fibrosis
     Dosage: 12 DF, QD ((25000) (12 DOSAGE FORM, 1/DAY)
     Route: 065
     Dates: start: 20240415
  8. FORMOTEROL FUMARATE [Suspect]
     Active Substance: FORMOTEROL FUMARATE
     Indication: Cystic fibrosis
     Route: 065
     Dates: start: 20240415
  9. ELEXACAFTOR\IVACAFTOR\TEZACAFTOR [Suspect]
     Active Substance: ELEXACAFTOR\IVACAFTOR\TEZACAFTOR
     Indication: Cystic fibrosis
     Dosage: 2 DF, QD
     Route: 065
     Dates: start: 20240415
  10. KALYDECO [Suspect]
     Active Substance: IVACAFTOR
     Indication: Cystic fibrosis
     Dosage: 150 MG, QD
     Route: 065
     Dates: start: 20240415
  11. IVACAFTOR\LUMACAFTOR [Suspect]
     Active Substance: IVACAFTOR\LUMACAFTOR
     Indication: Cystic fibrosis
     Route: 065
     Dates: start: 20240415
  12. PANCREATIN [Suspect]
     Active Substance: PANCRELIPASE
     Indication: Cystic fibrosis
     Dosage: 1 DF, QD
     Route: 065
     Dates: start: 20240415
  13. PULMICORT TURBUHALER [Suspect]
     Active Substance: BUDESONIDE
     Indication: Cystic fibrosis
     Route: 065
     Dates: start: 20240415
  14. TRIAMCINOLONE [Suspect]
     Active Substance: TRIAMCINOLONE
     Indication: Cystic fibrosis
     Dosage: 2 DF, QD
     Route: 065
     Dates: start: 20240415

REACTIONS (2)
  - Pericardial effusion [Recovered/Resolved]
  - Maternal exposure during pregnancy [Recovered/Resolved]

NARRATIVE: CASE EVENT DATE: 20240415
